FAERS Safety Report 17169373 (Version 3)
Quarter: 2020Q1

REPORT INFORMATION
  Report Type: Spontaneous
  Country: CA (occurrence: CA)
  Receive Date: 20191218
  Receipt Date: 20200217
  Transmission Date: 20200409
  Serious: Yes (Other)
  Sender: FDA-Public Use
  Company Number: CA-009507513-1912CAN005617

PATIENT
  Sex: Female

DRUGS (1)
  1. DESLORATADINE (+) PSEUDOEPHEDRINE SULFATE [Suspect]
     Active Substance: DESLORATADINE\PSEUDOEPHEDRINE SULFATE
     Indication: MULTIPLE ALLERGIES
     Dosage: 10 MG, QD

REACTIONS (4)
  - Nasal congestion [Unknown]
  - Dyspnoea [Unknown]
  - Drug ineffective [Unknown]
  - Suspected product quality issue [Unknown]
